FAERS Safety Report 9186919 (Version 1)
Quarter: 2013Q1

REPORT INFORMATION
  Report Type: Spontaneous
  Country: US (occurrence: US)
  Receive Date: 20130325
  Receipt Date: 20130325
  Transmission Date: 20140127
  Serious: Yes (Other)
  Sender: FDA-Public Use
  Company Number: US-UCBSA-081178

PATIENT
  Age: 29 Year
  Sex: Female
  Weight: 70.3 kg

DRUGS (4)
  1. CIMZIA [Suspect]
     Indication: CROHN^S DISEASE
  2. HUMIRA [Suspect]
     Indication: CROHN^S DISEASE
     Dates: start: 2006
  3. HUMIRA [Suspect]
     Indication: CROHN^S DISEASE
  4. CANASA [Concomitant]
     Indication: CROHN^S DISEASE

REACTIONS (1)
  - Hypotension [Recovered/Resolved]
